FAERS Safety Report 6186429-2 (Version None)
Quarter: 2009Q2

REPORT INFORMATION
  Report Type: 
  Country: None (occurrence: None)
  Receive Date: 20090511
  Receipt Date: 20090430
  Transmission Date: 20091009
  Serious: Yes (Hospitalization, Other)
  Sender: FDA-Public Use
  Company Number: JP-SANOFI-SYNTHELABO-A01200904025

PATIENT
  Sex: Male
  Weight: 69 kg

DRUGS (12)
  1. SU011248 [Suspect]
     Dosage: UNK
     Route: 048
     Dates: start: 20090312, end: 20090401
  2. FLUOROURACIL [Suspect]
     Dosage: UNK
     Route: 040
     Dates: start: 20090326, end: 20090326
  3. FLUOROURACIL [Suspect]
     Dosage: UNK
     Route: 041
     Dates: start: 20090326, end: 20090327
  4. LEUCOVORIN CALCIUM [Suspect]
     Dosage: UNK
     Route: 041
     Dates: start: 20090326, end: 20090326
  5. OXALIPLATIN [Suspect]
     Indication: RECTAL CANCER
     Dosage: UNK
     Route: 041
     Dates: start: 20090326, end: 20090326
  6. NORVASC [Concomitant]
     Indication: HYPERTENSION
     Route: 048
  7. CEFAMEZIN ALPHA [Concomitant]
     Dosage: SID, TID, BID
     Route: 042
     Dates: start: 20090413, end: 20090423
  8. GENTAMICIN [Concomitant]
     Route: 065
     Dates: start: 20090406
  9. VICCLOX [Concomitant]
     Dosage: TID, BID
     Route: 042
     Dates: start: 20090406, end: 20090413
  10. CEFTAZIDIME [Concomitant]
     Dosage: BID, SID
     Route: 042
     Dates: start: 20090406, end: 20090413
  11. PYRINAZIN [Concomitant]
     Route: 048
     Dates: start: 20090406, end: 20090409
  12. GARASONE [Concomitant]
     Indication: SKIN INFECTION
     Dates: start: 20090402, end: 20090406

REACTIONS (3)
  - HERPES VIRUS INFECTION [None]
  - NEUTROPHIL COUNT DECREASED [None]
  - WHITE BLOOD CELL COUNT DECREASED [None]
